FAERS Safety Report 5212132-9 (Version None)
Quarter: 2007Q1

REPORT INFORMATION
  Report Type: 
  Country: None (occurrence: None)
  Receive Date: 20070118
  Receipt Date: 20070117
  Transmission Date: 20070707
  Serious: Yes (Life-Threatening)
  Sender: FDA-Public Use
  Company Number: JP-SANOFI-SYNTHELABO-F01200700051

PATIENT
  Sex: Male
  Weight: 60 kg

DRUGS (3)
  1. LEUCOVORIN CALCIUM [Suspect]
     Dosage: 125 MG/BODY=74.4 MG/M2 INFUSION D1-2
     Route: 042
     Dates: start: 20060425, end: 20060426
  2. FLUOROURACIL [Suspect]
     Dosage: 500 MG/BODY=297.6 MG/M2 BOLUS THEN 750 MG/BODY=464 MG/M2 CONTINUOUS INFUSION D1-2
     Route: 042
     Dates: start: 20060425, end: 20060426
  3. OXALIPLATIN [Suspect]
     Indication: COLON CANCER
     Dosage: 100 MG/BODY=59.5 MG/M2 INFUSION D1
     Route: 042
     Dates: start: 20060425, end: 20060425

REACTIONS (1)
  - SHOCK [None]
